FAERS Safety Report 16688769 (Version 3)
Quarter: 2019Q4

REPORT INFORMATION
  Report Type: Spontaneous
  Country: US (occurrence: US)
  Receive Date: 20190809
  Receipt Date: 20191010
  Transmission Date: 20200122
  Serious: No
  Sender: FDA-Public Use
  Company Number: US-JNJFOC-20190717641

PATIENT
  Age: 76 Year
  Sex: Male

DRUGS (3)
  1. SPRAVATO [Suspect]
     Active Substance: ESKETAMINE
     Indication: DEPRESSION
     Dosage: INDUCTION PHASE WEEK 1-4
  2. CYMBALTA [Concomitant]
     Active Substance: DULOXETINE HYDROCHLORIDE
     Indication: DEPRESSION
  3. SPRAVATO [Suspect]
     Active Substance: ESKETAMINE
     Dosage: WEEK 5-6

REACTIONS (2)
  - Therapeutic response decreased [Not Recovered/Not Resolved]
  - Depression [Not Recovered/Not Resolved]
